FAERS Safety Report 7782978-1 (Version None)
Quarter: 2011Q3

REPORT INFORMATION
  Report Type: 
  Country: None (occurrence: None)
  Receive Date: 20110926
  Receipt Date: 20110908
  Transmission Date: 20111222
  Serious: Yes (Other)
  Sender: FDA-Public Use
  Company Number: JPI-P-011081

PATIENT
  Age: 64 Year
  Sex: Female
  Weight: 53.0709 kg

DRUGS (10)
  1. XYREM [Suspect]
     Indication: NARCOLEPSY
     Dosage: SEE IMAGE
     Route: 048
     Dates: start: 20100511
  2. XYREM [Suspect]
     Indication: NARCOLEPSY
     Dosage: SEE IMAGE
     Route: 048
     Dates: start: 20100101, end: 20100101
  3. XYREM [Suspect]
     Indication: NARCOLEPSY
     Dosage: SEE IMAGE
     Route: 048
     Dates: start: 20090316, end: 20090510
  4. XYREM [Suspect]
     Indication: NARCOLEPSY
     Dosage: SEE IMAGE
     Route: 048
     Dates: start: 20090316, end: 20090510
  5. XYREM [Suspect]
     Indication: NARCOLEPSY
     Dosage: SEE IMAGE
     Route: 048
     Dates: start: 20090303, end: 20090314
  6. XYREM [Suspect]
     Indication: NARCOLEPSY
     Dosage: SEE IMAGE
     Route: 048
     Dates: start: 20090303, end: 20090314
  7. XYREM [Suspect]
     Indication: NARCOLEPSY
     Dosage: SEE IMAGE
     Route: 048
     Dates: start: 20090315, end: 20090315
  8. XYREM [Suspect]
     Indication: NARCOLEPSY
     Dosage: SEE IMAGE
     Route: 048
     Dates: start: 20100101, end: 20100101
  9. ENALAPRIL MALEATE [Concomitant]
  10. MESALAMINE [Concomitant]

REACTIONS (11)
  - DIARRHOEA [None]
  - COGNITIVE DISORDER [None]
  - ANXIETY [None]
  - PARANOIA [None]
  - ONYCHOMADESIS [None]
  - CONFUSIONAL STATE [None]
  - VOMITING [None]
  - NAIL GROWTH ABNORMAL [None]
  - SKIN EXFOLIATION [None]
  - MEMORY IMPAIRMENT [None]
  - GAIT DISTURBANCE [None]
